FAERS Safety Report 5268082-5 (Version None)
Quarter: 2007Q1

REPORT INFORMATION
  Report Type: 
  Country: None (occurrence: None)
  Receive Date: 20070314
  Receipt Date: 20070314
  Transmission Date: 20070707
  Serious: Yes (Life-Threatening, Hospitalization, Other)
  Sender: FDA-Public Use
  Company Number: None

PATIENT
  Age: 50 Year
  Sex: Female
  Weight: 61.2356 kg

DRUGS (8)
  1. NEURONTIN [Suspect]
     Indication: AMNESIA
     Dosage: 1500MG PER DAY
     Dates: start: 20040810, end: 20040827
  2. NEURONTIN [Suspect]
     Indication: BIPOLAR DISORDER
     Dosage: 1500MG PER DAY
     Dates: start: 20040810, end: 20040827
  3. NEURONTIN [Suspect]
     Indication: SCHIZOPHRENIA, PARANOID TYPE
     Dosage: 1500MG PER DAY
     Dates: start: 20040810, end: 20040827
  4. ZYPREXA [Suspect]
     Indication: AMNESIA
     Dosage: 10MG
     Dates: start: 20040918, end: 20041001
  5. ZYPREXA [Suspect]
     Indication: BIPOLAR DISORDER
     Dosage: 10MG
     Dates: start: 20040918, end: 20041001
  6. ZYPREXA [Suspect]
     Indication: SCHIZOPHRENIA, PARANOID TYPE
     Dosage: 10MG
     Dates: start: 20040918, end: 20041001
  7. DEPAKOTE [Suspect]
     Dosage: 1000MG PER DAY
  8. LIPITOR [Suspect]
     Dosage: PO
     Route: 048

REACTIONS (6)
  - AMNESIA [None]
  - DRUG INTERACTION [None]
  - LABORATORY TEST ABNORMAL [None]
  - LOSS OF EMPLOYMENT [None]
  - NERVOUS SYSTEM DISORDER [None]
  - TREATMENT NONCOMPLIANCE [None]
